FAERS Safety Report 9860860 (Version 2)
Quarter: 2014Q1

REPORT INFORMATION
  Report Type: Spontaneous
  Country: US (occurrence: US)
  Receive Date: 20140202
  Receipt Date: 20140202
  Transmission Date: 20141002
  Serious: No
  Sender: FDA-Public Use
  Company Number: US-ALLERGAN-1301926US

PATIENT
  Sex: Male

DRUGS (2)
  1. BOTOX COSMETIC [Suspect]
     Indication: SKIN WRINKLING
     Dosage: 24 UNITS, SINGLE
     Route: 030
     Dates: start: 20130107, end: 20130107
  2. DYSPORT [Suspect]
     Dosage: UNK
     Dates: start: 201108, end: 201108

REACTIONS (2)
  - Wrong technique in drug usage process [Unknown]
  - Diplopia [Unknown]
